FAERS Safety Report 21526194 (Version 7)
Quarter: 2025Q1

REPORT INFORMATION
  Report Type: Report from Study
  Country: US (occurrence: US)
  Receive Date: 20221031
  Receipt Date: 20250212
  Transmission Date: 20250409
  Serious: Yes (Other)
  Sender: KYOWA
  Company Number: US-KYOWAKIRIN-2022BKK016777

PATIENT

DRUGS (22)
  1. BUROSUMAB [Suspect]
     Active Substance: BUROSUMAB
     Indication: Hereditary hypophosphataemic rickets
     Dosage: 60 MG, 1X/2 WEEKS
     Route: 058
     Dates: start: 20200605
  2. BUROSUMAB [Suspect]
     Active Substance: BUROSUMAB
     Dosage: 70 MG, 1X/2 WEEKS
     Route: 058
     Dates: start: 20200605
  3. BUROSUMAB [Suspect]
     Active Substance: BUROSUMAB
     Dosage: 80 MG, 1X/2 WEEKS
     Route: 058
     Dates: start: 20221118
  4. BUROSUMAB [Suspect]
     Active Substance: BUROSUMAB
     Dosage: 80 MG, 1X/2 WEEKS
     Route: 058
     Dates: start: 20230915
  5. BUROSUMAB [Suspect]
     Active Substance: BUROSUMAB
     Dosage: 80 MG, 1X/2 WEEKS
     Route: 058
     Dates: start: 20231124
  6. BUROSUMAB [Suspect]
     Active Substance: BUROSUMAB
     Dosage: 110 MG, 1X/3 WEEKS
     Route: 058
     Dates: start: 20240628
  7. BUROSUMAB [Suspect]
     Active Substance: BUROSUMAB
     Dosage: 110 MG, 1X/3 WEEKS
     Route: 058
     Dates: start: 20240823
  8. BUROSUMAB [Suspect]
     Active Substance: BUROSUMAB
     Indication: Hereditary hypophosphataemic rickets
     Dosage: 70 MG, 1X/2 WEEKS
     Route: 058
     Dates: start: 20200605
  9. BUROSUMAB [Suspect]
     Active Substance: BUROSUMAB
     Dosage: 110 MG, 1X/3 WEEKS
     Route: 058
     Dates: start: 20240628
  10. BUROSUMAB [Suspect]
     Active Substance: BUROSUMAB
     Dosage: 110 MG, 1X/3 WEEKS
     Route: 058
     Dates: start: 20240823
  11. BUROSUMAB [Suspect]
     Active Substance: BUROSUMAB
     Indication: Hereditary hypophosphataemic rickets
     Dosage: 70 MG, 1X/2 WEEKS
     Route: 058
     Dates: start: 20200605
  12. BUROSUMAB [Suspect]
     Active Substance: BUROSUMAB
     Dosage: 80 MG, 1X/2 WEEKS
     Route: 058
     Dates: start: 20221118
  13. BUROSUMAB [Suspect]
     Active Substance: BUROSUMAB
     Dosage: 80 MG, 1X/2 WEEKS
     Route: 058
     Dates: start: 20230915
  14. BUROSUMAB [Suspect]
     Active Substance: BUROSUMAB
     Dosage: 80 MG, 1X/2 WEEKS
     Route: 058
     Dates: start: 20231124
  15. BUROSUMAB [Suspect]
     Active Substance: BUROSUMAB
     Indication: Product used for unknown indication
     Dosage: UNK, 1X/4 WEEKS
     Route: 065
     Dates: start: 20200504
  16. BUROSUMAB [Suspect]
     Active Substance: BUROSUMAB
     Route: 065
  17. BUROSUMAB [Suspect]
     Active Substance: BUROSUMAB
     Dosage: UNK, 1X/2 WEEKS
     Route: 065
     Dates: start: 20200504
  18. BUROSUMAB [Suspect]
     Active Substance: BUROSUMAB
     Route: 065
  19. CRYSVITA [Concomitant]
     Active Substance: BUROSUMAB-TWZA
     Indication: Product used for unknown indication
     Route: 065
  20. PROBIOTICS NOS [Concomitant]
     Active Substance: PROBIOTICS NOS
     Indication: Product used for unknown indication
     Route: 065
  21. VITAMIN D3 [Concomitant]
     Active Substance: CHOLECALCIFEROL
     Indication: Product used for unknown indication
     Route: 065
  22. FLONASE [Concomitant]
     Active Substance: FLUTICASONE PROPIONATE
     Indication: Product used for unknown indication
     Route: 065

REACTIONS (14)
  - Nephrocalcinosis [Not Recovered/Not Resolved]
  - Fall [Unknown]
  - Epiphyses delayed fusion [Unknown]
  - Head injury [Unknown]
  - Bone pain [Unknown]
  - Blood alkaline phosphatase increased [Unknown]
  - Arthralgia [Unknown]
  - Blood phosphorus decreased [Not Recovered/Not Resolved]
  - Pain in extremity [Unknown]
  - Vitamin D deficiency [Not Recovered/Not Resolved]
  - Dizziness [Unknown]
  - Therapy change [Unknown]
  - Off label use [Not Recovered/Not Resolved]
  - Overdose [Not Recovered/Not Resolved]

NARRATIVE: CASE EVENT DATE: 20230317
